FAERS Safety Report 13960875 (Version 2)
Quarter: 2017Q4

REPORT INFORMATION
  Report Type: Spontaneous
  Country: US (occurrence: US)
  Receive Date: 20170912
  Receipt Date: 20171010
  Transmission Date: 20180320
  Serious: Yes (Other)
  Sender: FDA-Public Use
  Company Number: US-JNJFOC-20170908143

PATIENT

DRUGS (1)
  1. INVOKANA [Suspect]
     Active Substance: CANAGLIFLOZIN
     Indication: DIABETES MELLITUS
     Dosage: CATEGORY OF QUALITY INVESTIGATIONS FOR ADVERSE EVENT/ POTENCY/ LACK OF EFFECT/ DECREASED EFFECT
     Route: 065

REACTIONS (4)
  - Diabetes mellitus inadequate control [Unknown]
  - Treatment noncompliance [Unknown]
  - Peripheral vascular disorder [Unknown]
  - Skin ulcer [Unknown]
